FAERS Safety Report 13909468 (Version 5)
Quarter: 2019Q2

REPORT INFORMATION
  Report Type: Report from Study
  Country: BG (occurrence: BG)
  Receive Date: 20170828
  Receipt Date: 20190402
  Transmission Date: 20190711
  Serious: Yes (Hospitalization)
  Sender: FDA-Public Use
  Company Number: BG-ROCHE-1958632

PATIENT
  Age: 61 Year
  Sex: Male
  Weight: 84 kg

DRUGS (8)
  1. NEBIVOLOL. [Concomitant]
     Active Substance: NEBIVOLOL
     Route: 048
     Dates: start: 20170510, end: 20170517
  2. NEBIVOLOL. [Concomitant]
     Active Substance: NEBIVOLOL
     Route: 048
     Dates: start: 20170517
  3. ESOMEPRAZOLE. [Concomitant]
     Active Substance: ESOMEPRAZOLE MAGNESIUM
     Indication: CHOLELITHIASIS
     Route: 048
     Dates: start: 20170711
  4. PANTOPRAZOLE [Concomitant]
     Active Substance: PANTOPRAZOLE
     Indication: CHOLELITHIASIS
     Dosage: SOLUTION?POWDER FOR SOLUTION, AFTER SAMPLING
     Route: 042
     Dates: start: 20170707, end: 20170711
  5. ATEZOLIZUMAB. [Suspect]
     Active Substance: ATEZOLIZUMAB
     Indication: MALIGNANT URINARY TRACT NEOPLASM
     Dosage: ON 02/JUN/2017, THE PATIENT RECEIVED MOST RECENT DOSE.
     Route: 042
     Dates: start: 20170421
  6. GLUCOSE [Concomitant]
     Active Substance: DEXTROSE
     Indication: CHOLELITHIASIS
     Dosage: SOLUTION
     Route: 042
     Dates: start: 20170707, end: 20170717
  7. DICLOFENAC SODIUM. [Concomitant]
     Active Substance: DICLOFENAC SODIUM
     Route: 061
     Dates: start: 201703
  8. CEFTRIAXONE SODIUM. [Concomitant]
     Active Substance: CEFTRIAXONE SODIUM
     Indication: CHOLELITHIASIS
     Dosage: SOLUTION?POWDER FOR SOLUTION, AFTER SAMPLING
     Route: 042
     Dates: start: 20170707, end: 20170711

REACTIONS (1)
  - Pleural effusion [Recovered/Resolved]

NARRATIVE: CASE EVENT DATE: 20170622
